FAERS Safety Report 21604459 (Version 1)
Quarter: 2022Q4

REPORT INFORMATION
  Report Type: Spontaneous
  Country: JP (occurrence: None)
  Receive Date: 20221116
  Receipt Date: 20221116
  Transmission Date: 20230113
  Serious: Yes (Hospitalization)
  Sender: FDA-Public Use
  Company Number: 2022A372818

PATIENT
  Age: 74 Year
  Sex: Female
  Weight: 59 kg

DRUGS (9)
  1. DAPAGLIFLOZIN [Suspect]
     Active Substance: DAPAGLIFLOZIN
     Indication: Type 2 diabetes mellitus
     Dosage: DOSE UNKNOWN
     Route: 048
  2. MEKTOVI [Suspect]
     Active Substance: BINIMETINIB
     Indication: Colon cancer
     Route: 048
     Dates: start: 20220914, end: 20220927
  3. BRAFTOVI [Suspect]
     Active Substance: ENCORAFENIB
     Indication: Colon cancer
     Route: 048
     Dates: start: 20220914, end: 20220927
  4. ERBITUX [Suspect]
     Active Substance: CETUXIMAB
     Indication: Colon cancer
     Route: 041
     Dates: start: 20220914, end: 20220927
  5. CALONAL [Concomitant]
     Active Substance: ACETAMINOPHEN
     Dosage: DOSE UNKNOWN
     Route: 065
     Dates: start: 20171210
  6. FEXOFENADINE HYDROCHLORIDE [Concomitant]
     Active Substance: FEXOFENADINE HYDROCHLORIDE
     Dosage: DOSE UNKNOWN
     Route: 065
     Dates: start: 20211119
  7. MAGNESIUM OXIDE [Concomitant]
     Active Substance: MAGNESIUM OXIDE
     Dosage: DOSE UNKNOWN
     Route: 065
     Dates: start: 20211127
  8. AMPICILLIN SODIUM\SULBACTAM SODIUM [Concomitant]
     Active Substance: AMPICILLIN SODIUM\SULBACTAM SODIUM
     Dosage: DOSE UNKNOWN
     Route: 065
     Dates: start: 20220928
  9. LINAGLIPTIN [Concomitant]
     Active Substance: LINAGLIPTIN
     Dosage: DOSE UNKNOWN
     Route: 065

REACTIONS (1)
  - Metabolic acidosis [Recovered/Resolved]

NARRATIVE: CASE EVENT DATE: 20221001
